FAERS Safety Report 9467795 (Version 1)
Quarter: 2013Q3

REPORT INFORMATION
  Report Type: Spontaneous
  Country: US (occurrence: None)
  Receive Date: 20130819
  Receipt Date: 20130819
  Transmission Date: 20140515
  Serious: Yes (Disabling)
  Sender: FDA-Public Use
  Company Number: None

PATIENT
  Age: 36 Year
  Sex: Female
  Weight: 90.72 kg

DRUGS (1)
  1. CIPRO [Suspect]
     Indication: BACTERIAL INFECTION
     Dates: start: 20041201, end: 20131201

REACTIONS (3)
  - Pain [None]
  - Fibromyalgia [None]
  - Neuropathy peripheral [None]
